FAERS Safety Report 6640629-3 (Version None)
Quarter: 2010Q1

REPORT INFORMATION
  Report Type: 
  Country: None (occurrence: None)
  Receive Date: 20100302
  Receipt Date: 20100104
  Transmission Date: 20100710
  Serious: No
  Sender: FDA-Public Use
  Company Number: 2010001437

PATIENT
  Sex: Female

DRUGS (1)
  1. TOVIAZ [Suspect]
     Indication: HYPERTONIC BLADDER
     Dosage: 4 MG, 1X/DAY DAILY DOSE: 4MG, ORAL
     Route: 048
     Dates: start: 20090901, end: 20091201

REACTIONS (2)
  - COUGH [None]
  - DRY THROAT [None]
